FAERS Safety Report 10301601 (Version 4)
Quarter: 2014Q3

REPORT INFORMATION
  Report Type: Spontaneous
  Country: US (occurrence: None)
  Receive Date: 20140709
  Receipt Date: 20140818
  Transmission Date: 20150326
  Serious: Yes (Hospitalization, Disabling)
  Sender: FDA-Public Use
  Company Number: UNT-2014-000357

PATIENT
  Age: 55 Year
  Sex: Female
  Weight: 83.1 kg

DRUGS (2)
  1. TRACLEER [Concomitant]
     Active Substance: BOSENTAN\BOSENTAN MONOHYDRATE
  2. REMODULIN [Suspect]
     Active Substance: TREPROSTINIL
     Indication: PULMONARY ARTERIAL HYPERTENSION
     Dosage: 0.006 UG/KG/MIN, CONTINUING, SUBCUTANEOUS
     Route: 058
     Dates: start: 20140411, end: 20140709

REACTIONS (11)
  - Nausea [None]
  - Headache [None]
  - Oxygen saturation decreased [None]
  - Decreased appetite [None]
  - Vomiting [None]
  - Thirst [None]
  - Hypoxia [None]
  - Weight decreased [None]
  - Pneumonia [None]
  - Chronic obstructive pulmonary disease [None]
  - Drug dose omission [None]

NARRATIVE: CASE EVENT DATE: 20140612
